FAERS Safety Report 8847139 (Version 1)
Quarter: 2012Q4

REPORT INFORMATION
  Report Type: Spontaneous
  Country: DE (occurrence: None)
  Receive Date: 20121016
  Receipt Date: 20121016
  Transmission Date: 20130627
  Serious: Yes (Other)
  Sender: FDA-Public Use
  Company Number: GER/GER/12/0026179

PATIENT
  Age: 35 Year
  Sex: Female

DRUGS (2)
  1. CITALOPRAM (CITALOPRAM) [Suspect]
     Indication: DEPRESSION
     Dosage: Probably taken throughout pregnancy, but exact information not given
     Route: 048
  2. THYROXINE (LEVOTHYROXINE SODIUM) [Concomitant]

REACTIONS (3)
  - Caesarean section [None]
  - Glycosylated haemoglobin increased [None]
  - Exposure during pregnancy [None]
